FAERS Safety Report 19456624 (Version 1)
Quarter: 2021Q2

REPORT INFORMATION
  Report Type: Spontaneous
  Country: MX (occurrence: MX)
  Receive Date: 20210624
  Receipt Date: 20210624
  Transmission Date: 20210717
  Serious: Yes (Hospitalization)
  Sender: FDA-Public Use
  Company Number: MX-ALVOGEN-2021-ALVOGEN-117122

PATIENT
  Age: 75 Year
  Sex: Female

DRUGS (3)
  1. LYCIUM BARBARUM (HERBALS) [Suspect]
     Active Substance: HERBALS
     Indication: COVID-19 PROPHYLAXIS
     Dosage: 1?2 GLASSES PER DAY
  2. WARFARIN [Suspect]
     Active Substance: WARFARIN
     Indication: ANTICOAGULANT THERAPY
  3. FLECAINIDE [Suspect]
     Active Substance: FLECAINIDE
     Indication: SUPRAVENTRICULAR EXTRASYSTOLES
     Dosage: 100 MG BID

REACTIONS (5)
  - Toxicity to various agents [Recovered/Resolved]
  - Tachycardia [Recovered/Resolved]
  - Bundle branch block left [Recovered/Resolved]
  - Drug interaction [Recovered/Resolved]
  - Herbal interaction [Recovered/Resolved]
